FAERS Safety Report 23401561 (Version 1)
Quarter: 2024Q1

REPORT INFORMATION
  Report Type: Spontaneous
  Country: US (occurrence: US)
  Receive Date: 20240115
  Receipt Date: 20240115
  Transmission Date: 20240409
  Serious: No
  Sender: FDA-Public Use
  Company Number: US-PFIZER INC-202400012252

PATIENT
  Age: 48 Year
  Sex: Female

DRUGS (15)
  1. XELJANZ XR [Suspect]
     Active Substance: TOFACITINIB CITRATE
     Dosage: 11 MG, DAILY
     Route: 048
     Dates: start: 2020
  2. LUMIGAN [Concomitant]
     Active Substance: BIMATOPROST
  3. MIRENA [Concomitant]
     Active Substance: LEVONORGESTREL
     Dosage: 21MCG/2
  4. PROBIOTIC ACIDOPHILUS [CALCIUM PHOSPHATE DIBASIC;LACTOBACILLUS ACIDOPH [Concomitant]
     Dosage: 250MM C
  5. TIMOLOL MALEATE [Concomitant]
     Active Substance: TIMOLOL MALEATE
  6. VITAMIN D3 [Concomitant]
     Active Substance: CHOLECALCIFEROL
  7. METFORMIN HYDROCHLORIDE [Concomitant]
     Active Substance: METFORMIN HYDROCHLORIDE
  8. DULOXETINE HYDROCHLORIDE [Concomitant]
     Active Substance: DULOXETINE HYDROCHLORIDE
  9. PANTOPRAZOLE SODIUM ANHYDROUS [Concomitant]
     Active Substance: PANTOPRAZOLE SODIUM ANHYDROUS
  10. HYDROCHLOROTHIAZIDE\LOSARTAN POTASSIUM [Concomitant]
     Active Substance: HYDROCHLOROTHIAZIDE\LOSARTAN POTASSIUM
     Dosage: 100-12
  11. OSELTAMIVIR PHOSPHATE [Concomitant]
     Active Substance: OSELTAMIVIR PHOSPHATE
  12. FENOFIBRATE [Concomitant]
     Active Substance: FENOFIBRATE
  13. DICLOFENAC SODIUM [Concomitant]
     Active Substance: DICLOFENAC\DICLOFENAC SODIUM
  14. METHOTREXATE [Concomitant]
     Active Substance: METHOTREXATE
  15. METOPROLOL SUCCINATE [Concomitant]
     Active Substance: METOPROLOL SUCCINATE

REACTIONS (1)
  - Back pain [Recovering/Resolving]
